FAERS Safety Report 11568341 (Version 1)
Quarter: 2015Q3

REPORT INFORMATION
  Report Type: Spontaneous
  Country: US (occurrence: US)
  Receive Date: 20150916
  Receipt Date: 20150916
  Transmission Date: 20151125
  Serious: No
  Sender: FDA-Public Use
  Company Number: US-ELI_LILLY_AND_COMPANY-US200908002850

PATIENT
  Sex: Female

DRUGS (3)
  1. ANALGESICS [Concomitant]
     Active Substance: UNSPECIFIED INGREDIENT
     Indication: PAIN
  2. FORTEO [Suspect]
     Active Substance: TERIPARATIDE
     Indication: OSTEOPOROSIS
     Dosage: 20 UG, DAILY (1/D)
     Dates: start: 20090801
  3. COUMADIN [Concomitant]
     Active Substance: WARFARIN SODIUM

REACTIONS (6)
  - Pain in extremity [Unknown]
  - Pain [Unknown]
  - Malaise [Unknown]
  - Back pain [Unknown]
  - Gait disturbance [Unknown]
  - Anxiety [Unknown]
